FAERS Safety Report 9518852 (Version 1)
Quarter: 2013Q3

REPORT INFORMATION
  Report Type: Spontaneous
  Country: US (occurrence: None)
  Receive Date: 20130910
  Receipt Date: 20130910
  Transmission Date: 20140515
  Serious: Yes (Disabling, Other)
  Sender: FDA-Public Use
  Company Number: ACO_38160_2013

PATIENT
  Age: 57 Year
  Sex: Male
  Weight: 85.7 kg

DRUGS (8)
  1. AMPYRA (DALFAMPRIDINE) TABLET, 10MG [Suspect]
     Indication: GAIT DISTURBANCE
     Route: 048
     Dates: start: 20130806, end: 20130820
  2. BETASERON (ALBUMIN HUMAN, GLUCOSE, INTERFERON BETA) [Concomitant]
  3. GALANTAMINE (GALANTAMINE HYDROBROMIDE) [Concomitant]
  4. SIMVASTATIN (SIMVASTATIN) [Concomitant]
  5. LUVOX (FLUVOXAMINE MALEATE) [Concomitant]
  6. LORAZEPAM (LORAZEPAM) [Concomitant]
  7. MULTIVITAMIN (VITAMINS NOS) [Concomitant]
  8. OTHER THERAPEUTIC PRODUCTS (OTHER THERAPEUTIC PRODUCTS) [Concomitant]

REACTIONS (5)
  - Convulsion [None]
  - Dysarthria [None]
  - Flushing [None]
  - Hyperventilation [None]
  - Abasia [None]
